FAERS Safety Report 8064088 (Version 2)
Quarter: 2012Q4

REPORT INFORMATION
  Report Type: 
  Country: US (occurrence: US)
  Receive Date: 20110802
  Receipt Date: 20121003
  Transmission Date: 20130627
  Serious: Yes (Hospitalization)
  Sender: FDA-Public Use
  Company Number: US-US-EMD SERONO, INC.-7070472

PATIENT
  Age: 26 None
  Sex: Female
  Weight: 62 kg

DRUGS (4)
  1. REBIF [Suspect]
     Indication: MULTIPLE SCLEROSIS
     Route: 058
     Dates: start: 201009, end: 201009
  2. REBIF [Suspect]
     Route: 058
     Dates: start: 20110725
  3. NORCO [Concomitant]
     Indication: PAIN IN EXTREMITY
  4. BACLOFEN [Concomitant]

REACTIONS (2)
  - Multiple sclerosis relapse [Unknown]
  - Weight increased [Unknown]
